FAERS Safety Report 7304576-6 (Version None)
Quarter: 2011Q1

REPORT INFORMATION
  Report Type: 
  Country: None (occurrence: None)
  Receive Date: 20110222
  Receipt Date: 20101229
  Transmission Date: 20110831
  Serious: Yes (Hospitalization, Other)
  Sender: FDA-Public Use
  Company Number: PHHY2009GB23449

PATIENT
  Sex: Female

DRUGS (2)
  1. PENICILLIN V [Concomitant]
     Dosage: 250 MG, BID
  2. EXJADE [Suspect]
     Indication: IRON OVERLOAD
     Dosage: 1125 MG/DAY
     Route: 048
     Dates: start: 20090302, end: 20100222

REACTIONS (7)
  - SICKLE CELL ANAEMIA WITH CRISIS [None]
  - VOMITING [None]
  - FAECES DISCOLOURED [None]
  - ABDOMINAL PAIN UPPER [None]
  - GASTROOESOPHAGEAL REFLUX DISEASE [None]
  - NAUSEA [None]
  - ABDOMINAL DISTENSION [None]
